FAERS Safety Report 6337827-5 (Version None)
Quarter: 2009Q3

REPORT INFORMATION
  Report Type: 
  Country: None (occurrence: None)
  Receive Date: 20090902
  Receipt Date: 20090831
  Transmission Date: 20100115
  Serious: Yes (Hospitalization, Disabling)
  Sender: FDA-Public Use
  Company Number: A0805173A

PATIENT
  Age: 26 Year
  Sex: Male

DRUGS (2)
  1. LAMOTRIGINE [Suspect]
     Indication: DYSTHYMIC DISORDER
     Dosage: 200MG TWICE PER DAY
     Route: 048
     Dates: start: 20090201
  2. ZYRTEC [Concomitant]

REACTIONS (1)
  - NEPHROLITHIASIS [None]
